FAERS Safety Report 8860183 (Version 1)
Quarter: 2012Q4

REPORT INFORMATION
  Report Type: 
  Country: US (occurrence: US)
  Receive Date: 20121025
  Receipt Date: 20121025
  Transmission Date: 20130627
  Serious: Yes (Death, Hospitalization)
  Sender: FDA-Public Use
  Company Number: US-SANOFI-AVENTIS-2012SA076942

PATIENT
  Age: 35 Year
  Sex: Female

DRUGS (5)
  1. ZALTRAP [Suspect]
     Route: 041
     Dates: start: 201210, end: 201210
  2. LEUCOVORIN [Suspect]
     Route: 042
     Dates: start: 201210, end: 201210
  3. IRINOTECAN [Suspect]
     Route: 042
     Dates: start: 201210, end: 201210
  4. 5 FU [Suspect]
     Route: 042
     Dates: start: 201210, end: 201210
  5. ALL OTHER THERAPEUTIC PRODUCTS [Concomitant]

REACTIONS (2)
  - Death [Fatal]
  - Dyspnoea [Unknown]
